FAERS Safety Report 17165782 (Version 2)
Quarter: 2020Q1

REPORT INFORMATION
  Report Type: Spontaneous
  Country: US (occurrence: US)
  Receive Date: 20191217
  Receipt Date: 20200106
  Transmission Date: 20200409
  Serious: Yes (Other)
  Sender: FDA-Public Use
  Company Number: US-PFIZER INC-2019494641

PATIENT
  Age: 66 Year
  Sex: Male
  Weight: 77 kg

DRUGS (1)
  1. XELJANZ [Suspect]
     Active Substance: TOFACITINIB CITRATE
     Indication: ARTHRITIS
     Dosage: 5 MG, 2X/DAY, (ONE IN THE MORNING AND ONE IN THE NIGHT)
     Dates: end: 201911

REACTIONS (3)
  - Lung neoplasm malignant [Unknown]
  - Product use in unapproved indication [Unknown]
  - Off label use [Unknown]
